FAERS Safety Report 25793288 (Version 3)
Quarter: 2025Q3

REPORT INFORMATION
  Report Type: Spontaneous
  Country: BR (occurrence: BR)
  Receive Date: 20250911
  Receipt Date: 20250928
  Transmission Date: 20251021
  Serious: Yes (Life-Threatening, Hospitalization, Other)
  Sender: MERCK SHARP & DOHME LLC
  Company Number: BR-009507513-2327298

PATIENT
  Age: 57 Year
  Sex: Female
  Weight: 54.7 kg

DRUGS (5)
  1. PEMBROLIZUMAB [Suspect]
     Active Substance: PEMBROLIZUMAB
     Indication: Invasive ductal breast carcinoma
     Route: 065
     Dates: start: 20250515, end: 2025
  2. PACLITAXEL [Suspect]
     Active Substance: PACLITAXEL
     Indication: Invasive ductal breast carcinoma
     Route: 065
     Dates: start: 20250515, end: 20250807
  3. CARBOPLATIN [Suspect]
     Active Substance: CARBOPLATIN
     Indication: Invasive ductal breast carcinoma
     Route: 065
     Dates: start: 20250515, end: 20250807
  4. DOXORUBICIN [Suspect]
     Active Substance: DOXORUBICIN
     Indication: Invasive ductal breast carcinoma
     Route: 065
  5. CYCLOPHOSPHAMIDE [Suspect]
     Active Substance: CYCLOPHOSPHAMIDE
     Route: 065
     Dates: start: 20250814

REACTIONS (2)
  - Febrile neutropenia [Recovered/Resolved]
  - Hyperthyroidism [Unknown]

NARRATIVE: CASE EVENT DATE: 20250101
